FAERS Safety Report 5774683-8 (Version None)
Quarter: 2008Q2

REPORT INFORMATION
  Report Type: 
  Country: None (occurrence: None)
  Receive Date: 20080616
  Receipt Date: 20080616
  Transmission Date: 20081010
  Serious: Yes (Other)
  Sender: FDA-Public Use
  Company Number: None

PATIENT
  Sex: Female

DRUGS (3)
  1. PROZAC [Suspect]
     Indication: BIPOLAR DISORDER
  2. PROZAC [Suspect]
     Indication: BORDERLINE PERSONALITY DISORDER
  3. PROZAC [Suspect]
     Indication: POST-TRAUMATIC STRESS DISORDER

REACTIONS (1)
  - NAUSEA [None]
